FAERS Safety Report 9489456 (Version 2)
Quarter: 2015Q2

REPORT INFORMATION
  Report Type: Spontaneous
  Country: US (occurrence: US)
  Receive Date: 20130829
  Receipt Date: 20150504
  Transmission Date: 20150821
  Serious: Yes (Hospitalization, Other)
  Sender: FDA-Public Use
  Company Number: PHHY2013US091395

PATIENT
  Age: 7 Year
  Sex: Male

DRUGS (4)
  1. TEMOZOLOMIDE. [Suspect]
     Active Substance: TEMOZOLOMIDE
     Indication: ALVEOLAR RHABDOMYOSARCOMA
     Dosage: 100 MG/M2, UNK
     Route: 048
  2. PEGFILGRASTIM [Concomitant]
     Active Substance: PEGFILGRASTIM
     Indication: BLOOD DISORDER
     Route: 065
  3. IRINOTECAN [Suspect]
     Active Substance: IRINOTECAN
     Indication: ALVEOLAR RHABDOMYOSARCOMA
     Dosage: 30 MG/M2, UNK
     Route: 042
  4. VINCRISTINE [Suspect]
     Active Substance: VINCRISTINE
     Indication: ALVEOLAR RHABDOMYOSARCOMA
     Dosage: 1.5 MG/M2, UNK
     Route: 042

REACTIONS (4)
  - Chills [Unknown]
  - Neuropathy peripheral [Recovering/Resolving]
  - Alveolar rhabdomyosarcoma [Unknown]
  - Pyrexia [Unknown]
